FAERS Safety Report 19322465 (Version 6)
Quarter: 2022Q4

REPORT INFORMATION
  Report Type: Report from Study
  Country: US (occurrence: US)
  Receive Date: 20210528
  Receipt Date: 20221227
  Transmission Date: 20230112
  Serious: No
  Sender: FDA-Public Use
  Company Number: NVSC2021US112675

PATIENT
  Age: 51 Year
  Sex: Female

DRUGS (1)
  1. KESIMPTA [Suspect]
     Active Substance: OFATUMUMAB
     Indication: Multiple sclerosis
     Dosage: UNK
     Route: 058
     Dates: start: 20210327

REACTIONS (8)
  - Skin exfoliation [Unknown]
  - Nervousness [Unknown]
  - Muscle spasticity [Unknown]
  - Feeling hot [Unknown]
  - Memory impairment [Unknown]
  - Headache [Unknown]
  - Therapeutic response shortened [Unknown]
  - Product supply issue [Unknown]

NARRATIVE: CASE EVENT DATE: 20210327
